FAERS Safety Report 9799546 (Version 1)
Quarter: 2014Q1

REPORT INFORMATION
  Report Type: Spontaneous
  Country: US (occurrence: None)
  Receive Date: 20140103
  Receipt Date: 20140103
  Transmission Date: 20141002
  Serious: No
  Sender: FDA-Public Use
  Company Number: None

PATIENT
  Age: 58 Year
  Sex: Female

DRUGS (1)
  1. HUMIRA, 40 MG, ABBVIE [Suspect]
     Indication: RHEUMATOID ARTHRITIS
     Dates: start: 20110208

REACTIONS (4)
  - Tremor [None]
  - Anxiety [None]
  - Dyskinesia [None]
  - Fall [None]
